FAERS Safety Report 4307848-2 (Version None)
Quarter: 2004Q1

REPORT INFORMATION
  Report Type: 
  Country: None (occurrence: None)
  Receive Date: 20040226
  Receipt Date: 20031014
  Transmission Date: 20041129
  Serious: Yes (Hospitalization, Other)
  Sender: FDA-Public Use
  Company Number: 2003181401US

PATIENT
  Age: 52 Year
  Sex: Female

DRUGS (4)
  1. CELEBREX [Suspect]
     Indication: CARTILAGE REPAIR
     Dosage: 200 MG, QD, ORAL
     Route: 048
     Dates: start: 20000101, end: 20020801
  2. OSTEO-BIFLEX [Concomitant]
  3. VITAMINS NOS (VITAMINS NOS) [Concomitant]
  4. ZINC SULFATE [Concomitant]

REACTIONS (2)
  - BLISTER [None]
  - HYPERSENSITIVITY [None]
